FAERS Safety Report 7141955-4 (Version None)
Quarter: 2010Q4

REPORT INFORMATION
  Report Type: 
  Country: None (occurrence: None)
  Receive Date: 20101207
  Receipt Date: 20101124
  Transmission Date: 20110411
  Serious: Yes (Congenital Anomaly)
  Sender: FDA-Public Use
  Company Number: A0681514A

PATIENT
  Sex: Male
  Weight: 3.5 kg

DRUGS (10)
  1. PAXIL CR [Suspect]
     Indication: DEPRESSION
     Dosage: 25MG PER DAY
     Dates: start: 20040501, end: 20040801
  2. PAROXETINE HYDROCHLORIDE [Suspect]
     Indication: DEPRESSION
     Dosage: 20MG PER DAY
     Dates: start: 20040901, end: 20050101
  3. SALICYLATE [Suspect]
  4. PRENATAL VITAMINS [Concomitant]
  5. PROCARDIA [Concomitant]
  6. FIORICET [Concomitant]
  7. ASPIRIN [Concomitant]
  8. DEMEROL [Concomitant]
  9. VICODIN [Concomitant]
     Dates: start: 20040401
  10. LORTAB [Concomitant]
     Dates: start: 20040401

REACTIONS (5)
  - DRUG EXPOSURE DURING PREGNANCY [None]
  - HYDRONEPHROSIS [None]
  - RENAL APLASIA [None]
  - UMBILICAL CORD ABNORMALITY [None]
  - VESICOURETERIC REFLUX [None]
